FAERS Safety Report 4602833-5 (Version None)
Quarter: 2005Q1

REPORT INFORMATION
  Report Type: 
  Country: None (occurrence: None)
  Receive Date: 20050309
  Receipt Date: 20050104
  Transmission Date: 20050727
  Serious: Yes (Other)
  Sender: FDA-Public Use
  Company Number: US-MERCK-0501USA00231

PATIENT
  Age: 35 Year
  Sex: Male
  Weight: 83 kg

DRUGS (2)
  1. PROPECIA [Suspect]
     Indication: ALOPECIA
     Route: 048
     Dates: start: 20040901, end: 20041224
  2. PROPECIA [Suspect]
     Route: 048
     Dates: start: 20040901, end: 20041224

REACTIONS (2)
  - FURUNCLE [None]
  - PENILE ABSCESS [None]
